FAERS Safety Report 6718029-7 (Version None)
Quarter: 2010Q2

REPORT INFORMATION
  Report Type: 
  Country: None (occurrence: None)
  Receive Date: 20100510
  Receipt Date: 20100428
  Transmission Date: 20101027
  Serious: Yes (Hospitalization, Other)
  Sender: FDA-Public Use
  Company Number: PHHY2009AU15196

PATIENT
  Sex: Female

DRUGS (2)
  1. EXJADE [Suspect]
     Indication: THALASSAEMIA
     Dosage: 500 MG, BID
     Route: 048
     Dates: start: 20061113, end: 20090310
  2. EXJADE [Suspect]
     Indication: IRON OVERLOAD

REACTIONS (5)
  - DUODENAL ULCER HAEMORRHAGE [None]
  - GASTRIC HAEMORRHAGE [None]
  - HELICOBACTER INFECTION [None]
  - MELAENA [None]
  - PLATELET COUNT DECREASED [None]
